FAERS Safety Report 5370016-X (Version None)
Quarter: 2007Q2

REPORT INFORMATION
  Report Type: 
  Country: None (occurrence: None)
  Receive Date: 20070626
  Receipt Date: 20070618
  Transmission Date: 20071010
  Serious: Yes (Other)
  Sender: FDA-Public Use
  Company Number: PHEH2007US09043

PATIENT
  Age: 29 Year
  Sex: Female

DRUGS (2)
  1. TRILEPTAL [Suspect]
     Indication: PROPHYLAXIS
     Dosage: 7 DF, ONCE/SINGLE
     Route: 065
  2. SUBOXONE [Suspect]

REACTIONS (3)
  - CONVULSION [None]
  - MALAISE [None]
  - OVERDOSE [None]
